FAERS Safety Report 10071142 (Version 2)
Quarter: 2014Q3

REPORT INFORMATION
  Report Type: Spontaneous
  Country: IT (occurrence: IT)
  Receive Date: 20140410
  Receipt Date: 20140724
  Transmission Date: 20150326
  Serious: Yes (Other)
  Sender: FDA-Public Use
  Company Number: IT-ABBVIE-14P-083-1223772-00

PATIENT
  Age: 55 Year
  Sex: Male

DRUGS (5)
  1. SEROQUEL [Suspect]
     Active Substance: QUETIAPINE FUMARATE
     Route: 048
     Dates: start: 20140309, end: 20140309
  2. EN [Suspect]
     Active Substance: DELORAZEPAM
     Indication: DRUG ABUSE
     Route: 048
     Dates: start: 20140309, end: 20140309
  3. DEPAKIN [Suspect]
     Active Substance: VALPROATE SODIUM
     Indication: DRUG ABUSE
     Route: 048
     Dates: start: 20140309, end: 20140309
  4. SEROQUEL [Suspect]
     Active Substance: QUETIAPINE FUMARATE
  5. SEROQUEL [Suspect]
     Active Substance: QUETIAPINE FUMARATE
     Indication: DRUG ABUSE
     Route: 048
     Dates: start: 20140309, end: 20140309

REACTIONS (9)
  - Disorientation [Recovering/Resolving]
  - Dysarthria [Recovering/Resolving]
  - Restlessness [Recovering/Resolving]
  - Drug abuse [Unknown]
  - Somnolence [Unknown]
  - Sopor [Recovering/Resolving]
  - Agitation [Recovering/Resolving]
  - Tremor [Unknown]
  - Confabulation [Recovering/Resolving]

NARRATIVE: CASE EVENT DATE: 20140309
